FAERS Safety Report 6423981-3 (Version None)
Quarter: 2009Q4

REPORT INFORMATION
  Report Type: 
  Country: None (occurrence: None)
  Receive Date: 20091102
  Receipt Date: 20091021
  Transmission Date: 20100525
  Serious: Yes (Death)
  Sender: FDA-Public Use
  Company Number: JP-GENENTECH-271651

PATIENT
  Sex: Male

DRUGS (5)
  1. AVASTIN [Suspect]
     Indication: RECTAL CANCER RECURRENT
     Dosage: 350 MG, Q2W
     Route: 041
     Dates: start: 20080605, end: 20081106
  2. ELPLAT [Suspect]
     Indication: RECTAL CANCER RECURRENT
     Dosage: 150 MG, QD
     Route: 041
     Dates: start: 20081023, end: 20081106
  3. FLUOROURACIL [Concomitant]
     Indication: DRUG USE FOR UNKNOWN INDICATION
     Dosage: UNK
     Dates: start: 20080228, end: 20081024
  4. CALCIUM LEVOFOLINATE [Concomitant]
     Indication: DRUG USE FOR UNKNOWN INDICATION
     Dosage: UNK
     Dates: start: 20080228, end: 20081106
  5. TOPOTECAN [Concomitant]
     Indication: DRUG USE FOR UNKNOWN INDICATION
     Dosage: UNK
     Dates: start: 20080228, end: 20080911

REACTIONS (8)
  - ARTERIAL SPASM [None]
  - CARDIO-RESPIRATORY ARREST [None]
  - GASTROINTESTINAL NECROSIS [None]
  - HEPATIC STEATOSIS [None]
  - LIVER ABSCESS [None]
  - PLATELET COUNT DECREASED [None]
  - SEPSIS [None]
  - WHITE BLOOD CELL COUNT DECREASED [None]
